FAERS Safety Report 25283015 (Version 9)
Quarter: 2025Q3

REPORT INFORMATION
  Report Type: Report from Study
  Country: US (occurrence: US)
  Receive Date: 20250508
  Receipt Date: 20250925
  Transmission Date: 20251021
  Serious: Yes (Hospitalization)
  Sender: SUNOVION
  Company Number: US-SMPA-2025SPA005427

PATIENT
  Age: 79 Year
  Sex: Male

DRUGS (24)
  1. ORGOVYX [Suspect]
     Active Substance: RELUGOLIX
     Indication: Prostate cancer
     Dosage: 360 MG, SINGLE
     Route: 048
     Dates: start: 20250426, end: 20250426
  2. ORGOVYX [Suspect]
     Active Substance: RELUGOLIX
     Dosage: 120 MG, QD
     Route: 048
     Dates: start: 20250427
  3. ELIQUIS [Suspect]
     Active Substance: APIXABAN
     Indication: Product used for unknown indication
  4. ABIRATERONE [Concomitant]
     Active Substance: ABIRATERONE
     Indication: Prostate cancer
  5. ABIRATERONE [Concomitant]
     Active Substance: ABIRATERONE
     Dosage: 1 DF, QD (1 TABLET)
  6. EZETIMIBE [Concomitant]
     Active Substance: EZETIMIBE
  7. FERROUS SULFATE [Concomitant]
     Active Substance: FERROUS SULFATE
  8. FISH OIL [Concomitant]
     Active Substance: FISH OIL
  9. FUROSEMIDE [Concomitant]
     Active Substance: FUROSEMIDE
  10. GLIPIZIDE [Concomitant]
     Active Substance: GLIPIZIDE
  11. JARDIANCE [Concomitant]
     Active Substance: EMPAGLIFLOZIN
  12. PANTOPRAZOLE [Concomitant]
     Active Substance: PANTOPRAZOLE
  13. PREDNISONE [Concomitant]
     Active Substance: PREDNISONE
  14. VITAMIN B COMPLEX [Concomitant]
     Active Substance: CYANOCOBALAMIN\DEXPANTHENOL\NIACINAMIDE\PYRIDOXINE HYDROCHLORIDE\RIBOFLAVIN 5^-PHOSPHATE SODIUM\THIA
  15. VITAMIN C [Concomitant]
     Active Substance: ASCORBIC ACID
  16. VITAMIN D3 [Concomitant]
     Active Substance: CHOLECALCIFEROL
  17. ASPIRIN [Concomitant]
     Active Substance: ASPIRIN
  18. CARVEDILOL [Concomitant]
     Active Substance: CARVEDILOL
  19. DULOXETINE [Concomitant]
     Active Substance: DULOXETINE
  20. ENTRESTO [Concomitant]
     Active Substance: SACUBITRIL\VALSARTAN
  21. CYMBALTA [Concomitant]
     Active Substance: DULOXETINE HYDROCHLORIDE
  22. LASIX [Concomitant]
     Active Substance: FUROSEMIDE
  23. LEQVIO [Concomitant]
     Active Substance: INCLISIRAN SODIUM
     Route: 058
  24. CALCIUM [Concomitant]
     Active Substance: CALCIUM

REACTIONS (16)
  - Disorientation [Unknown]
  - Hypopnoea [Unknown]
  - Dysstasia [Unknown]
  - Vomiting [Unknown]
  - Dehydration [Unknown]
  - Body temperature increased [Unknown]
  - Blood pressure decreased [Unknown]
  - Prostatic specific antigen increased [Unknown]
  - Epistaxis [Unknown]
  - Weight fluctuation [Unknown]
  - Haemoglobin decreased [Recovering/Resolving]
  - Constipation [Unknown]
  - Fatigue [Unknown]
  - Blood glucose increased [Recovering/Resolving]
  - Bone pain [Unknown]
  - Therapy interrupted [Unknown]
